FAERS Safety Report 23514437 (Version 32)
Quarter: 2025Q1

REPORT INFORMATION
  Report Type: Report from Study
  Country: CO (occurrence: CO)
  Receive Date: 20240212
  Receipt Date: 20250221
  Transmission Date: 20250409
  Serious: Yes (Hospitalization, Other)
  Sender: TAKEDA
  Company Number: CO-TAKEDA-2023TUS110763

PATIENT
  Age: 10 Year
  Sex: Male
  Weight: 22 kg

DRUGS (3)
  1. IDURSULFASE [Suspect]
     Active Substance: IDURSULFASE
     Indication: Mucopolysaccharidosis II
     Dosage: 12 MILLIGRAM, 1/WEEK
     Dates: start: 20231110
  2. IDURSULFASE [Suspect]
     Active Substance: IDURSULFASE
     Dosage: 10 MILLIGRAM, 1/WEEK
  3. IDURSULFASE [Suspect]
     Active Substance: IDURSULFASE
     Dosage: 12 MILLIGRAM, 1/WEEK

REACTIONS (22)
  - Umbilical hernia [Unknown]
  - Inguinal hernia [Unknown]
  - Generalised tonic-clonic seizure [Recovered/Resolved]
  - Hydrocephalus [Unknown]
  - Seizure [Not Recovered/Not Resolved]
  - Orchitis noninfective [Unknown]
  - Joint effusion [Not Recovered/Not Resolved]
  - Pain [Not Recovered/Not Resolved]
  - Product availability issue [Unknown]
  - Infection [Not Recovered/Not Resolved]
  - Gait disturbance [Not Recovered/Not Resolved]
  - Vascular access site extravasation [Not Recovered/Not Resolved]
  - Vascular access site inflammation [Not Recovered/Not Resolved]
  - Weight increased [Unknown]
  - Treatment noncompliance [Recovered/Resolved]
  - Poor venous access [Not Recovered/Not Resolved]
  - Product prescribing error [Unknown]
  - Incorrect dose administered [Unknown]
  - Inappropriate schedule of product administration [Unknown]
  - Product dose omission issue [Unknown]
  - Body height increased [Unknown]
  - Weight decreased [Unknown]

NARRATIVE: CASE EVENT DATE: 20231110
